FAERS Safety Report 4592990-1 (Version None)
Quarter: 2005Q1

REPORT INFORMATION
  Report Type: 
  Country: None (occurrence: None)
  Receive Date: 20050125
  Receipt Date: 20040824
  Transmission Date: 20050727
  Serious: No
  Sender: FDA-Public Use
  Company Number: USA040876340

PATIENT
  Age: 71 Year
  Sex: Female
  Weight: 57 kg

DRUGS (2)
  1. FORTEO [Suspect]
     Dosage: 20 UG/1 DAY
     Dates: start: 20040823
  2. RALOXIFENE HCL [Suspect]
     Dosage: 60 MG/1 DAY
     Dates: start: 20010501, end: 20040822

REACTIONS (2)
  - DRUG INEFFECTIVE [None]
  - INJECTION SITE ERYTHEMA [None]
